FAERS Safety Report 4627259-X (Version None)
Quarter: 2005Q1

REPORT INFORMATION
  Report Type: 
  Country: None (occurrence: None)
  Receive Date: 20050331
  Receipt Date: 20050318
  Transmission Date: 20050727
  Serious: Yes (Hospitalization)
  Sender: FDA-Public Use
  Company Number: 212523

PATIENT
  Age: 43 Year
  Sex: 0

DRUGS (7)
  1. MABTHERA(RITUXIMAB) CONC FOR SOLUTION FOR INFUSION [Suspect]
     Indication: LYMPHOMA
     Dosage: 750 MG, INTRAVENOUS
     Route: 042
     Dates: start: 20041202
  2. MABTHERA(RITUXIMAB) CONC FOR SOLUTION FOR INFUSION [Suspect]
     Indication: LYMPHOMA
     Dosage: 750 MG, INTRAVENOUS
     Route: 042
     Dates: start: 20041209
  3. MABTHERA(RITUXIMAB) CONC FOR SOLUTION FOR INFUSION [Suspect]
     Indication: LYMPHOMA
     Dosage: 750 MG, INTRAVENOUS
     Route: 042
     Dates: start: 20050127
  4. MABTHERA(RITUXIMAB) CONC FOR SOLUTION FOR INFUSION [Suspect]
     Indication: LYMPHOMA
     Dosage: 750 MG, INTRAVENOUS
     Route: 042
     Dates: start: 20050203
  5. ALLOPURINOL [Concomitant]
  6. PIRITON (CHLORPHENIRAMINE MALEATE) [Concomitant]
  7. ACETAMINOPHEN [Concomitant]

REACTIONS (4)
  - EYE SWELLING [None]
  - LOWER RESPIRATORY TRACT INFECTION [None]
  - MALAISE [None]
  - RASH [None]
